FAERS Safety Report 11205071 (Version 8)
Quarter: 2025Q1

REPORT INFORMATION
  Report Type: Report from Study
  Country: US (occurrence: US)
  Receive Date: 20150622
  Receipt Date: 20250327
  Transmission Date: 20250409
  Serious: Yes (Death, Hospitalization, Other)
  Sender: TAKEDA
  Company Number: US-SHIRE-US201502117

PATIENT
  Sex: Male
  Weight: 25 kg

DRUGS (2)
  1. IDURSULFASE [Suspect]
     Active Substance: IDURSULFASE
     Indication: Mucopolysaccharidosis II
     Dosage: 12 MILLIGRAM, 1/WEEK
     Dates: start: 20140423
  2. IDURSULFASE [Suspect]
     Active Substance: IDURSULFASE
     Dosage: UNK UNK, 1/WEEK

REACTIONS (10)
  - Death [Fatal]
  - Gait inability [Not Recovered/Not Resolved]
  - Respiratory syncytial virus infection [Recovered/Resolved]
  - Femur fracture [Unknown]
  - Complication associated with device [Unknown]
  - Tracheal disorder [Unknown]
  - Hypotonia [Not Recovered/Not Resolved]
  - Osteoporosis [Unknown]
  - Product dose omission issue [Unknown]
  - Drug ineffective [Not Recovered/Not Resolved]

NARRATIVE: CASE EVENT DATE: 20150101
